FAERS Safety Report 23964139 (Version 1)
Quarter: 2024Q2

REPORT INFORMATION
  Report Type: Spontaneous
  Country: US (occurrence: None)
  Receive Date: 20240611
  Receipt Date: 20240611
  Transmission Date: 20240715
  Serious: Yes (Other)
  Sender: FDA-Public Use
  Company Number: None

PATIENT
  Age: 61 Year
  Sex: Female

DRUGS (1)
  1. NUCALA [Suspect]
     Active Substance: MEPOLIZUMAB
     Indication: Asthma
     Dosage: OTHER FREQUENCY : Q28 DAYS;?
     Route: 058
     Dates: start: 20230623, end: 20240508

REACTIONS (3)
  - Asthma [None]
  - Therapy interrupted [None]
  - Eosinophil count increased [None]

NARRATIVE: CASE EVENT DATE: 20240413
